FAERS Safety Report 14256204 (Version 2)
Quarter: 2018Q1

REPORT INFORMATION
  Report Type: Spontaneous
  Country: US (occurrence: US)
  Receive Date: 20171206
  Receipt Date: 20180329
  Transmission Date: 20180508
  Serious: Yes (Hospitalization)
  Sender: FDA-Public Use
  Company Number: US-JNJFOC-20171206194

PATIENT
  Age: 48 Year
  Sex: Female

DRUGS (1)
  1. INVOKANA [Suspect]
     Active Substance: CANAGLIFLOZIN
     Indication: TYPE 2 DIABETES MELLITUS
     Route: 048
     Dates: start: 20140920

REACTIONS (6)
  - Cerebrovascular accident [Unknown]
  - Peripheral ischaemia [Recovering/Resolving]
  - Toe amputation [Recovering/Resolving]
  - Diabetic foot infection [Recovering/Resolving]
  - Extremity necrosis [Recovering/Resolving]
  - Toe amputation [Recovering/Resolving]

NARRATIVE: CASE EVENT DATE: 20151117
